FAERS Safety Report 18770828 (Version 1)
Quarter: 2021Q1

REPORT INFORMATION
  Report Type: Spontaneous
  Country: PL (occurrence: PL)
  Receive Date: 20210121
  Receipt Date: 20210121
  Transmission Date: 20210419
  Serious: Yes (Hospitalization)
  Sender: FDA-Public Use
  Company Number: NVSC2021PL012019

PATIENT
  Age: 39 Year
  Sex: Female
  Weight: 67 kg

DRUGS (1)
  1. OSPEN 1500 [PHENOXYMETHYLPENICILLIN (= PENICILLIN V)] [Suspect]
     Active Substance: PENICILLIN V
     Indication: TONSILLITIS STREPTOCOCCAL
     Dosage: 1500 MG, Q8H
     Route: 048
     Dates: start: 20180314, end: 20180320

REACTIONS (1)
  - Skin lesion [Recovering/Resolving]

NARRATIVE: CASE EVENT DATE: 20180320
